FAERS Safety Report 17071168 (Version 1)
Quarter: 2019Q4

REPORT INFORMATION
  Report Type: Spontaneous
  Country: FR (occurrence: FR)
  Receive Date: 20191125
  Receipt Date: 20191125
  Transmission Date: 20200122
  Serious: Yes (Hospitalization)
  Sender: FDA-Public Use
  Company Number: FR-ADDMEDICA-201900273

PATIENT
  Age: 10 Year
  Sex: Male
  Weight: 38 kg

DRUGS (10)
  1. SIKLOS [Suspect]
     Active Substance: HYDROXYUREA
     Indication: SICKLE CELL DISEASE
     Route: 048
     Dates: start: 20190927
  2. SPECIAFOLDINE 5 MG, COMPRIM? [Suspect]
     Active Substance: FOLIC ACID
     Indication: PROPHYLAXIS
     Route: 048
     Dates: start: 2011, end: 20190522
  3. EXJADE [Suspect]
     Active Substance: DEFERASIROX
     Indication: PROPHYLAXIS
     Route: 048
     Dates: start: 2018, end: 20181126
  4. EXJADE [Suspect]
     Active Substance: DEFERASIROX
     Indication: PROPHYLAXIS
     Dosage: 90 MG X 2 /DAY
     Route: 048
     Dates: start: 20180830, end: 2018
  5. SIKLOS [Suspect]
     Active Substance: HYDROXYUREA
     Indication: SICKLE CELL DISEASE
     Route: 048
     Dates: start: 2011
  6. SIKLOS [Suspect]
     Active Substance: HYDROXYUREA
     Indication: SICKLE CELL DISEASE
     Route: 048
     Dates: start: 201808, end: 20190314
  7. EXJADE [Suspect]
     Active Substance: DEFERASIROX
     Indication: PROPHYLAXIS
     Route: 048
     Dates: start: 20181127, end: 20190522
  8. ORACILLINE [Suspect]
     Active Substance: PENICILLIN V
     Indication: PROPHYLAXIS
     Route: 048
     Dates: start: 2011, end: 20190522
  9. EXJADE [Suspect]
     Active Substance: DEFERASIROX
     Indication: PROPHYLAXIS
     Dosage: 90 MG X 3 /DAY
     Route: 048
     Dates: start: 2018, end: 2018
  10. SIKLOS [Suspect]
     Active Substance: HYDROXYUREA
     Indication: SICKLE CELL DISEASE
     Route: 048
     Dates: start: 20190920, end: 20190926

REACTIONS (2)
  - Hepatitis [Recovered/Resolved]
  - Hyperammonaemic encephalopathy [Recovered/Resolved]

NARRATIVE: CASE EVENT DATE: 20190315
